FAERS Safety Report 9139618 (Version 1)
Quarter: 2013Q1

REPORT INFORMATION
  Report Type: Spontaneous
  Country: US (occurrence: None)
  Receive Date: 20130205
  Receipt Date: 20130205
  Transmission Date: 20140127
  Serious: Yes (Death)
  Sender: FDA-Public Use
  Company Number: VAL_01335_2013

PATIENT
  Age: 60 Year
  Sex: Male

DRUGS (4)
  1. METOPROLOL [Suspect]
     Indication: PRODUCT USED FOR UNKNOWN INDICATION
  2. DIGOXIN [Suspect]
  3. DIAZEPAM [Suspect]
  4. ACETAMINOPHEN W/HYDROCODONE [Suspect]

REACTIONS (1)
  - Completed suicide [None]
